FAERS Safety Report 4838216-2 (Version None)
Quarter: 2005Q4

REPORT INFORMATION
  Report Type: 
  Country: None (occurrence: None)
  Receive Date: 20051123
  Receipt Date: 20051108
  Transmission Date: 20060501
  Serious: Yes (Death, Life-Threatening, Hospitalization)
  Sender: FDA-Public Use
  Company Number: AND_0243_2005

PATIENT
  Age: 68 Year
  Sex: Male

DRUGS (5)
  1. CLARITHROMYCIN [Suspect]
     Dosage: 500 MG BID PO
     Route: 048
  2. COLCHICINE [Suspect]
     Indication: GOUTY ARTHRITIS
     Dosage: 0.5 MG Q6HR PO
     Route: 048
  3. COLCHICINE [Suspect]
     Indication: GOUTY ARTHRITIS
     Dosage: 0.5 MG Q8HR PO
     Route: 048
  4. PIPERACILLIN-TAZOBACTAM [Concomitant]
  5. EMPIRICAL [Concomitant]

REACTIONS (13)
  - AGRANULOCYTOSIS [None]
  - CHILLS [None]
  - DIARRHOEA [None]
  - DRUG INTERACTION [None]
  - GENERAL PHYSICAL HEALTH DETERIORATION [None]
  - HEPATIC ENZYME ABNORMAL [None]
  - HEPATIC FAILURE [None]
  - HEPATIC NECROSIS [None]
  - HYPOTENSION [None]
  - ILEUS PARALYTIC [None]
  - PANCYTOPENIA [None]
  - PYREXIA [None]
  - RENAL FAILURE ACUTE [None]
